FAERS Safety Report 5224667-3 (Version None)
Quarter: 2007Q1

REPORT INFORMATION
  Report Type: 
  Country: None (occurrence: None)
  Receive Date: 20070131
  Receipt Date: 20070129
  Transmission Date: 20070707
  Serious: Yes (Other)
  Sender: FDA-Public Use
  Company Number: US-RB-004963-07

PATIENT
  Sex: Female

DRUGS (9)
  1. SUBUTEX [Suspect]
     Route: 060
     Dates: start: 20061110, end: 20061220
  2. SUBOXONE [Suspect]
     Route: 060
     Dates: start: 20060418, end: 20060621
  3. SUBOXONE [Suspect]
     Dosage: 8MG+8MG+8MG+2MG
     Route: 060
     Dates: start: 20060622, end: 20060814
  4. SUBOXONE [Suspect]
     Route: 060
     Dates: start: 20060321, end: 20060417
  5. SUBOXONE [Suspect]
     Route: 060
     Dates: start: 20060815, end: 20061109
  6. SUBOXONE [Suspect]
     Route: 060
     Dates: start: 20061221
  7. PROZAC [Concomitant]
     Indication: DEPRESSION
     Route: 048
  8. LAMICTAL [Concomitant]
     Route: 048
     Dates: end: 20061110
  9. CLONIDINE [Concomitant]
     Indication: INSOMNIA
     Route: 048
     Dates: end: 20061110

REACTIONS (2)
  - ABORTION INDUCED [None]
  - DRUG EXPOSURE DURING PREGNANCY [None]
